FAERS Safety Report 25200617 (Version 1)
Quarter: 2025Q2

REPORT INFORMATION
  Report Type: Spontaneous
  Country: BR (occurrence: BR)
  Receive Date: 20250415
  Receipt Date: 20250415
  Transmission Date: 20250717
  Serious: Yes (Other)
  Sender: BAYER
  Company Number: BR-BAYER-2025A046733

PATIENT
  Age: 56 Year
  Sex: Male

DRUGS (14)
  1. STIVARGA [Suspect]
     Active Substance: REGORAFENIB MONOHYDRATE
     Indication: Colorectal cancer
     Dosage: 80 MG, QD, WEEK 1 OF 1ST CYCLE
     Route: 048
     Dates: start: 202108
  2. STIVARGA [Suspect]
     Active Substance: REGORAFENIB MONOHYDRATE
     Indication: Metastases to liver
     Dosage: 120 MG, QD, WEEK 2 OF 1ST CYCLE
     Route: 048
     Dates: start: 2021
  3. STIVARGA [Suspect]
     Active Substance: REGORAFENIB MONOHYDRATE
     Indication: Colorectal cancer
     Dosage: 160 MG, QD,WEEK 3 OF 1ST CYCLE
     Route: 048
     Dates: start: 2021
  4. STIVARGA [Suspect]
     Active Substance: REGORAFENIB MONOHYDRATE
     Indication: Colorectal cancer
     Dosage: 120 MG, QD, D1-D21 EVERY 28 DAYS, FOR 7 MONTHS
     Route: 048
     Dates: start: 2021
  5. FLUOROURACIL\IRINOTECAN\LEUCOVORIN\OXALIPLATIN [Concomitant]
     Active Substance: FLUOROURACIL\IRINOTECAN\LEUCOVORIN\OXALIPLATIN
  6. FLUOROURACIL\IRINOTECAN\LEUCOVORIN\OXALIPLATIN [Concomitant]
     Active Substance: FLUOROURACIL\IRINOTECAN\LEUCOVORIN\OXALIPLATIN
  7. FLUOROURACIL\IRINOTECAN\LEUCOVORIN\OXALIPLATIN [Concomitant]
     Active Substance: FLUOROURACIL\IRINOTECAN\LEUCOVORIN\OXALIPLATIN
  8. FLUOROURACIL\IRINOTECAN\LEUCOVORIN\OXALIPLATIN [Concomitant]
     Active Substance: FLUOROURACIL\IRINOTECAN\LEUCOVORIN\OXALIPLATIN
  9. BEVACIZUMAB [Concomitant]
     Active Substance: BEVACIZUMAB
  10. BEVACIZUMAB [Concomitant]
     Active Substance: BEVACIZUMAB
  11. BEVACIZUMAB [Concomitant]
     Active Substance: BEVACIZUMAB
  12. BEVACIZUMAB [Concomitant]
     Active Substance: BEVACIZUMAB
  13. TIPIRACIL HYDROCHLORIDE\TRIFLURIDINE [Concomitant]
     Active Substance: TIPIRACIL HYDROCHLORIDE\TRIFLURIDINE
  14. OXALIPLATIN [Concomitant]
     Active Substance: OXALIPLATIN

REACTIONS (8)
  - Metastases to liver [None]
  - Toxicity to various agents [None]
  - Nausea [Recovering/Resolving]
  - Fatigue [Recovering/Resolving]
  - Palmar-plantar erythrodysaesthesia syndrome [Recovering/Resolving]
  - Diarrhoea [Recovering/Resolving]
  - Fatigue [Recovering/Resolving]
  - Product use issue [None]

NARRATIVE: CASE EVENT DATE: 20210101
